FAERS Safety Report 20896978 (Version 2)
Quarter: 2022Q2

REPORT INFORMATION
  Report Type: Spontaneous
  Country: ES (occurrence: ES)
  Receive Date: 20220531
  Receipt Date: 20220531
  Transmission Date: 20220721
  Serious: Yes (Hospitalization)
  Sender: FDA-Public Use
  Company Number: None

PATIENT
  Age: 72 Year
  Sex: Female

DRUGS (4)
  1. ZIRABEV [Suspect]
     Active Substance: BEVACIZUMAB-BVZR
     Dosage: 1125 MG, CYCLIC (CYCLE 6)
     Route: 042
     Dates: start: 20220224, end: 20220224
  2. CARBOPLATIN [Suspect]
     Active Substance: CARBOPLATIN
     Dosage: 450 MG, CYCLIC
     Route: 042
     Dates: start: 20210630, end: 20211015
  3. PACLITAXEL [Suspect]
     Active Substance: PACLITAXEL
     Dosage: 300 MG, CYCLIC (6 CYCLES OF PACLITAXEL + CARBOPLATIN + ATEZOLIZUMAB + BEVACIZUMAB)
     Route: 042
     Dates: start: 20210630, end: 20211015
  4. TECENTRIQ [Suspect]
     Active Substance: ATEZOLIZUMAB
     Dosage: 1200 MG, CYCLIC (CYCLE 6)
     Route: 042
     Dates: start: 20220224

REACTIONS (1)
  - Posterior reversible encephalopathy syndrome [Recovered/Resolved]

NARRATIVE: CASE EVENT DATE: 20220303
